FAERS Safety Report 11221396 (Version 1)
Quarter: 2015Q2

REPORT INFORMATION
  Report Type: Spontaneous
  Country: PL (occurrence: PL)
  Receive Date: 20150626
  Receipt Date: 20150626
  Transmission Date: 20150821
  Serious: Yes (Other)
  Sender: FDA-Public Use
  Company Number: PL-JNJFOC-20150619670

PATIENT
  Age: 83 Year
  Sex: Male

DRUGS (1)
  1. XARELTO [Suspect]
     Active Substance: RIVAROXABAN
     Indication: CARDIAC DISORDER
     Route: 048
     Dates: start: 2013

REACTIONS (3)
  - Intraocular pressure increased [Recovering/Resolving]
  - Blindness unilateral [Not Recovered/Not Resolved]
  - Cataract [Unknown]
